FAERS Safety Report 4616747-8 (Version None)
Quarter: 2005Q2

REPORT INFORMATION
  Report Type: 
  Country: None (occurrence: None)
  Receive Date: 20050311
  Receipt Date: 20041203
  Transmission Date: 20051028
  Serious: Yes (Hospitalization)
  Sender: FDA-Public Use
  Company Number: 2004-00886

PATIENT
  Age: 79 Year
  Sex: Male

DRUGS (3)
  1. VELCADE [Suspect]
     Indication: MULTIPLE MYELOMA
     Dosage: INTRAVENOUS
     Route: 042
     Dates: start: 20040101, end: 20041129
  2. TOPROL-XL [Concomitant]
  3. WARFARIN SODUIM (WARFARIN SODIUM) [Concomitant]

REACTIONS (3)
  - ARRHYTHMIA [None]
  - LIVER FUNCTION TEST ABNORMAL [None]
  - SYNCOPE [None]
